FAERS Safety Report 8612167-X (Version None)
Quarter: 2012Q3

REPORT INFORMATION
  Report Type: 
  Country: None (occurrence: None)
  Receive Date: 20120813
  Receipt Date: 20120813
  Transmission Date: 20120928
  Serious: No
  Sender: FDA-Public Use
  Company Number: None

PATIENT

DRUGS (2)
  1. BISMUTH SUBSALICYLATE [Suspect]
     Indication: ANTIDIARRHOEAL SUPPORTIVE CARE
  2. BISMUTH SUBSALICYLATE [Suspect]
     Indication: LAXATIVE SUPPORTIVE CARE

REACTIONS (2)
  - MEDICATION ERROR [None]
  - DRUG NAME CONFUSION [None]
